FAERS Safety Report 24694848 (Version 1)
Quarter: 2024Q4

REPORT INFORMATION
  Report Type: Spontaneous
  Country: FR (occurrence: FR)
  Receive Date: 20241204
  Receipt Date: 20241204
  Transmission Date: 20250114
  Serious: Yes (Other)
  Sender: AMGEN
  Company Number: FR-ROCHE-3403955

PATIENT
  Age: 43 Year
  Sex: Female
  Weight: 55 kg

DRUGS (13)
  1. TRASTUZUMAB [Suspect]
     Active Substance: TRASTUZUMAB
     Indication: Breast cancer metastatic
     Dosage: 336 MILLIGRAM, Q3WK (ON 31/JUL/2023 START DATE OF MOST RECENT DOSE OF STUDY DRUG PRIOR TO AE AND SAE
     Route: 040
     Dates: start: 20230731
  2. RUNIMOTAMAB [Suspect]
     Active Substance: RUNIMOTAMAB
     Indication: Breast cancer metastatic
     Dosage: ON 08/AUG/2023 START DATE OF MOST RECENT DOSE OF STUDY DRUG PRIOR TO AE/SAE, TOTAL VOLUME 6 MLLAST S
     Route: 040
     Dates: start: 20230801
  3. ACETAMINOPHEN [Concomitant]
     Active Substance: ACETAMINOPHEN
     Indication: Abdominal pain
     Dosage: 1 GRAM
     Route: 048
     Dates: start: 20230731, end: 20230808
  4. ACETAMINOPHEN [Concomitant]
     Active Substance: ACETAMINOPHEN
     Dosage: 1 GRAM
     Route: 048
     Dates: start: 20230721, end: 20230730
  5. ACETAMINOPHEN [Concomitant]
     Active Substance: ACETAMINOPHEN
     Dosage: 08-AUG-2023
     Route: 048
     Dates: start: 20230801, end: 20230801
  6. ACETAMINOPHEN [Concomitant]
     Active Substance: ACETAMINOPHEN
     Dosage: FREQUENCY TEXT:PRN
     Route: 048
     Dates: start: 20230809, end: 20230810
  7. TRAMADOL [Concomitant]
     Active Substance: TRAMADOL
     Indication: Abdominal pain
     Dosage: 50 MILLIGRAM
     Route: 048
     Dates: start: 20230731, end: 20230804
  8. TRAMADOL [Concomitant]
     Active Substance: TRAMADOL
     Dosage: 50 MILLIGRAM
     Route: 048
     Dates: start: 20230725, end: 20230730
  9. VALACYCLOVIR HYDROCHLORIDE [Concomitant]
     Active Substance: VALACYCLOVIR HYDROCHLORIDE
     Indication: Herpes virus infection
     Dosage: 500 MILLIGRAM
     Route: 048
     Dates: start: 20230801, end: 20230806
  10. DEXAMETHASONE [Concomitant]
     Active Substance: DEXAMETHASONE
     Dosage: 20 MILLIGRAM
     Route: 040
     Dates: start: 20230801, end: 20230801
  11. DEXCHLORPHENIRAMINE [Concomitant]
     Active Substance: DEXCHLORPHENIRAMINE
     Dosage: 08-AUG-2023
     Route: 040
     Dates: start: 20230801, end: 20230801
  12. POTASSIUM CHLORIDE [Concomitant]
     Active Substance: POTASSIUM CHLORIDE
     Indication: Hypokalaemia
     Dosage: 1 TABLET
     Route: 048
     Dates: start: 20230811, end: 20230813
  13. MOTILIUM [Concomitant]
     Active Substance: DOMPERIDONE
     Indication: Diarrhoea
     Dosage: 1 TABLET
     Route: 048
     Dates: start: 20230812, end: 20230812

REACTIONS (1)
  - Cytokine release syndrome [Recovered/Resolved]

NARRATIVE: CASE EVENT DATE: 20230809
